FAERS Safety Report 16123864 (Version 1)
Quarter: 2019Q1

REPORT INFORMATION
  Report Type: Spontaneous
  Country: FR (occurrence: FR)
  Receive Date: 20190327
  Receipt Date: 20190327
  Transmission Date: 20190418
  Serious: Yes (Other)
  Sender: FDA-Public Use
  Company Number: FR-PFIZER INC-2019129697

PATIENT
  Sex: Female
  Weight: 53 kg

DRUGS (11)
  1. LAMALINE [ATROPA BELLADONNA EXTRACT;CAFFEINE;PAPAVER SOMNIFERUM TINCTU [Concomitant]
     Active Substance: ACETAMINOPHEN\BELLADONNA LEAF\CAFFEINE\OPIUM
     Dosage: 4 DF, 1X/DAY
     Dates: start: 20190129
  2. LYRICA [Suspect]
     Active Substance: PREGABALIN
     Indication: NEURALGIA
     Dosage: 150 MG, 1X/DAY
     Route: 048
     Dates: start: 20190131
  3. PARACETAMOL [Concomitant]
     Active Substance: ACETAMINOPHEN
     Dosage: 1500 MG, 1X/DAY
  4. NORMACOL [CALENDULA OFFICINALIS;RHAMNUS FRANGULA] [Concomitant]
     Dosage: 1 DF, 1X/DAY
  5. PANTOPRAZOLE [Concomitant]
     Active Substance: PANTOPRAZOLE
     Dosage: 20 MG, 1X/DAY
     Dates: start: 20160822
  6. TARDYFERON [Concomitant]
     Active Substance: FERROUS SULFATE
     Dosage: 160 MG, 1X/DAY
     Dates: start: 20160822
  7. ACLASTA [Concomitant]
     Active Substance: ZOLEDRONIC ACID
     Dosage: 1 MG, SINGLE
     Dates: start: 20190204, end: 20190204
  8. XENAZINE [Concomitant]
     Active Substance: TETRABENAZINE
     Dosage: 75 MG, 1X/DAY
     Dates: start: 20160822
  9. ATORVASTATINE ACCORD [Concomitant]
     Active Substance: ATORVASTATIN
     Dosage: 20 MG, 1X/DAY
     Dates: start: 20160822
  10. EDUCTYL [Concomitant]
     Active Substance: POTASSIUM BITARTRATE\SODIUM BICARBONATE
     Dosage: 1 DF, 1X/DAY
  11. MOVICOL [Concomitant]
     Active Substance: POLYETHYLENE GLYCOL 3350\POTASSIUM CHLORIDE\SODIUM BICARBONATE\SODIUM CHLORIDE
     Dosage: 1 DF, 1X/DAY

REACTIONS (1)
  - Mixed liver injury [Recovering/Resolving]

NARRATIVE: CASE EVENT DATE: 20190204
